FAERS Safety Report 6288870-6 (Version None)
Quarter: 2009Q3

REPORT INFORMATION
  Report Type: 
  Country: None (occurrence: None)
  Receive Date: 20090729
  Receipt Date: 20090717
  Transmission Date: 20100115
  Serious: Yes (Hospitalization)
  Sender: FDA-Public Use
  Company Number: US-ELI_LILLY_AND_COMPANY-US200905001062

PATIENT
  Age: 57 Year
  Sex: Male

DRUGS (5)
  1. ZYPREXA [Suspect]
     Indication: BIPOLAR DISORDER
     Dosage: 10 MG, 2/D
     Dates: start: 20000701
  2. ZYPREXA [Suspect]
     Dosage: 20 MG, EACH EVENING
  3. ATIVAN [Concomitant]
     Dosage: 1 MG, DAILY (1/D)
  4. COGENTIN [Concomitant]
     Dosage: 2 MG, EACH EVENING
  5. TRAZODONE [Concomitant]
     Dosage: 150 MG, DAILY (1/D)

REACTIONS (5)
  - ADRENAL INSUFFICIENCY [None]
  - AGGRESSION [None]
  - ANXIETY [None]
  - HYPOTHERMIA [None]
  - PNEUMONIA [None]
